FAERS Safety Report 6164055-9 (Version None)
Quarter: 2009Q2

REPORT INFORMATION
  Report Type: 
  Country: None (occurrence: None)
  Receive Date: 20090420
  Receipt Date: 20090407
  Transmission Date: 20091009
  Serious: No
  Sender: FDA-Public Use
  Company Number: 2008-188471-NL

PATIENT
  Age: 73 Year
  Sex: Male

DRUGS (9)
  1. CHORIONIC GONADTROPIN [Suspect]
     Indication: BLOOD TESTOSTERONE DECREASED
     Dosage: 5000 IU WEEKLY
     Dates: start: 19941201, end: 20081204
  2. ALDACTAZINE [Concomitant]
  3. BISOPROLOL FUMARATE [Concomitant]
  4. RABEPRAZOLE SODIUM [Concomitant]
  5. ALFUZOSIN HCL [Concomitant]
  6. ATORVASTATIN CALCIUM [Concomitant]
  7. CLOPIDOGREL SULFATE [Concomitant]
  8. FUROSEMIDE [Concomitant]
  9. VALSARTAN [Concomitant]

REACTIONS (4)
  - BREAST CALCIFICATIONS [None]
  - BREAST CYST [None]
  - BREAST NEOPLASM [None]
  - GYNAECOMASTIA [None]
